FAERS Safety Report 19687260 (Version 1)
Quarter: 2021Q3

REPORT INFORMATION
  Report Type: Spontaneous
  Country: US (occurrence: US)
  Receive Date: 20210811
  Receipt Date: 20210811
  Transmission Date: 20211014
  Serious: Yes (Other)
  Sender: FDA-Public Use
  Company Number: US-PFIZER INC-202100999190

PATIENT
  Age: 29 Year
  Sex: Male

DRUGS (3)
  1. PROGRAF [Interacting]
     Active Substance: TACROLIMUS
  2. CELLCEPT [Interacting]
     Active Substance: MYCOPHENOLATE MOFETIL\MYCOPHENOLATE MOFETIL HYDROCHLORIDE
     Dosage: UNK
  3. XELJANZ [Suspect]
     Active Substance: TOFACITINIB CITRATE
     Dosage: 10 MG
     Dates: start: 20210308

REACTIONS (2)
  - Immunosuppression [Unknown]
  - Drug interaction [Unknown]
